FAERS Safety Report 6711784-1 (Version None)
Quarter: 2010Q2

REPORT INFORMATION
  Report Type: 
  Country: None (occurrence: None)
  Receive Date: 20100505
  Receipt Date: 20100426
  Transmission Date: 20101027
  Serious: Yes (Other)
  Sender: FDA-Public Use
  Company Number: B0650906A

PATIENT

DRUGS (1)
  1. ROSIGLITAZONE [Suspect]
     Route: 065

REACTIONS (6)
  - BLOOD ERYTHROPOIETIN ABNORMAL [None]
  - BONE MARROW FAILURE [None]
  - EXOPHTHALMOS [None]
  - FAT TISSUE INCREASED [None]
  - MYELODYSPLASTIC SYNDROME [None]
  - PANCYTOPENIA [None]
